FAERS Safety Report 5116652-7 (Version None)
Quarter: 2006Q3

REPORT INFORMATION
  Report Type: 
  Country: None (occurrence: None)
  Receive Date: 20060928
  Receipt Date: 20051220
  Transmission Date: 20061208
  Serious: Yes (Hospitalization)
  Sender: FDA-Public Use
  Company Number: FR-GLAXOSMITHKLINE-B0404494A

PATIENT
  Age: 9 Year
  Sex: Male
  Weight: 28 kg

DRUGS (8)
  1. ZOPHREN [Suspect]
     Dosage: 4MG PER DAY
     Route: 065
     Dates: start: 20050801, end: 20050901
  2. CYCLOPHOSPHAMIDE [Suspect]
     Dosage: 2.1GM2 CYCLIC
     Route: 065
     Dates: start: 20050914, end: 20050915
  3. ETOPOSIDE [Suspect]
     Dosage: 350MGM2 CYCLIC
     Route: 065
     Dates: start: 20050826, end: 20050915
  4. CARBOPLATIN [Suspect]
     Dosage: 750MGM2 CYCLIC
     Route: 065
     Dates: start: 20050826
  5. CISPLATIN [Suspect]
     Dosage: 80MGM2 PER DAY
     Route: 065
     Dates: start: 20050905, end: 20050926
  6. VINCRISTINE [Suspect]
     Dosage: 1.5MGM2 PER DAY
     Route: 065
     Dates: start: 20050826, end: 20050914
  7. BACTRIM DS [Concomitant]
     Route: 065
     Dates: start: 20050801
  8. NEUPOGEN [Concomitant]
     Route: 065
     Dates: start: 20050801

REACTIONS (5)
  - ASCITES [None]
  - HEPATOCELLULAR DAMAGE [None]
  - HEPATOMEGALY [None]
  - PLEURAL EFFUSION [None]
  - RESPIRATORY DISTRESS [None]
